FAERS Safety Report 8393201-1 (Version None)
Quarter: 2012Q2

REPORT INFORMATION
  Report Type: 
  Country: None (occurrence: None)
  Receive Date: 20120529
  Receipt Date: 20120514
  Transmission Date: 20120825
  Serious: No
  Sender: FDA-Public Use
  Company Number: US-ABBOTT-12P-163-0938314-00

PATIENT
  Sex: Male
  Weight: 83.536 kg

DRUGS (3)
  1. ANDROGEL [Suspect]
     Indication: BLOOD TESTOSTERONE DECREASED
     Dosage: 2 PUMPS A DAY
     Dates: start: 20110901, end: 20111201
  2. CRESTOR [Concomitant]
     Indication: PRODUCT USED FOR UNKNOWN INDICATION
  3. SIMVASTATIN [Concomitant]
     Indication: PRODUCT USED FOR UNKNOWN INDICATION

REACTIONS (5)
  - PSYCHOMOTOR HYPERACTIVITY [None]
  - TACHYPHRENIA [None]
  - DRUG INTOLERANCE [None]
  - BLOOD PRESSURE INCREASED [None]
  - ANGER [None]
